FAERS Safety Report 9526891 (Version 1)
Quarter: 2013Q3

REPORT INFORMATION
  Report Type: Spontaneous
  Country: JP (occurrence: JP)
  Receive Date: 20130916
  Receipt Date: 20130916
  Transmission Date: 20140515
  Serious: Yes (Other)
  Sender: FDA-Public Use
  Company Number: JP-MYLANLABS-2013S1020325

PATIENT
  Age: 56 Year
  Sex: Male

DRUGS (4)
  1. OXALIPLATIN [Suspect]
     Indication: RECTAL CANCER METASTATIC
     Dosage: 85 MG/M2 OVER 2H
     Route: 041
  2. FOLINIC ACID [Suspect]
     Indication: RECTAL CANCER METASTATIC
     Dosage: 200 MG/M2 OVER 2H
     Route: 041
  3. FLUOROURACIL [Suspect]
     Indication: RECTAL CANCER METASTATIC
     Dosage: 400 MG/M2
     Route: 040
  4. FLUOROURACIL [Suspect]
     Indication: RECTAL CANCER METASTATIC
     Dosage: 2400 MG/M2 OVER 46H
     Route: 041

REACTIONS (3)
  - Splenomegaly [Recovered/Resolved]
  - Thrombocytopenia [Recovering/Resolving]
  - Neuropathy peripheral [Recovering/Resolving]
